FAERS Safety Report 5547793-8 (Version None)
Quarter: 2007Q4

REPORT INFORMATION
  Report Type: 
  Country: None (occurrence: None)
  Receive Date: 20071211
  Receipt Date: 20070304
  Transmission Date: 20080405
  Serious: No
  Sender: FDA-Public Use
  Company Number: US-AMGEN-KDL213637

PATIENT
  Sex: Female

DRUGS (1)
  1. ENBREL [Suspect]
     Indication: PSORIATIC ARTHROPATHY
     Route: 058
     Dates: start: 20070120

REACTIONS (5)
  - NASAL CONGESTION [None]
  - POSTNASAL DRIP [None]
  - PRURITUS [None]
  - SINUSITIS [None]
  - SNEEZING [None]
